FAERS Safety Report 9997655 (Version 1)
Quarter: 2014Q1

REPORT INFORMATION
  Report Type: Spontaneous
  Country: US (occurrence: US)
  Receive Date: 20140311
  Receipt Date: 20140311
  Transmission Date: 20141002
  Serious: No
  Sender: FDA-Public Use
  Company Number: US-PFIZER INC-2014062478

PATIENT
  Age: 68 Year
  Sex: Male
  Weight: 73.92 kg

DRUGS (1)
  1. DIFLUCAN [Suspect]
     Indication: MENINGITIS COCCIDIOIDES
     Dosage: 800 MG, 1X/DAY
     Route: 048
     Dates: start: 2000

REACTIONS (2)
  - Drug ineffective [Unknown]
  - Malaise [Unknown]
